FAERS Safety Report 13691156 (Version 1)
Quarter: 2017Q2

REPORT INFORMATION
  Report Type: Spontaneous
  Country: US (occurrence: US)
  Receive Date: 20170626
  Receipt Date: 20170626
  Transmission Date: 20170830
  Serious: Yes (Other)
  Sender: FDA-Public Use
  Company Number: US-ROCHE-749549

PATIENT
  Age: 49 Year
  Sex: Female

DRUGS (2)
  1. PREDNISONE. [Concomitant]
     Active Substance: PREDNISONE
     Route: 065
  2. MYCOPHENOLATE MOFETIL. [Suspect]
     Active Substance: MYCOPHENOLATE MOFETIL
     Indication: TRANSPLANT REJECTION
     Route: 065

REACTIONS (5)
  - Leukopenia [Recovering/Resolving]
  - Colitis [Recovering/Resolving]
  - Anaemia [Recovering/Resolving]
  - Oesophagitis ulcerative [Recovering/Resolving]
  - Metabolic acidosis [Recovering/Resolving]
